FAERS Safety Report 6914412 (Version 4)
Quarter: 2014Q1

REPORT INFORMATION
  Report Type: Spontaneous
  Country: US (occurrence: US)
  Receive Date: 20090220
  Receipt Date: 20140227
  Transmission Date: 20141002
  Serious: Yes (Death, Hospitalization, Other)
  Sender: FDA-Public Use
  Company Number: US-ASTRAZENECA-2009UW04568

PATIENT
  Age: 75 Year
  Sex: Male

DRUGS (2)
  1. NEXIUM [Suspect]
     Route: 048
  2. CHEMOTHERAPY TREATMENTS [Concomitant]

REACTIONS (2)
  - Death [Fatal]
  - Cerebrovascular accident [Unknown]
